FAERS Safety Report 4862806-4 (Version None)
Quarter: 2005Q4

REPORT INFORMATION
  Report Type: 
  Country: None (occurrence: None)
  Receive Date: 20051221
  Receipt Date: 20051109
  Transmission Date: 20060501
  Serious: No
  Sender: FDA-Public Use
  Company Number: US-BRISTOL-MYERS SQUIBB COMPANY-13175609

PATIENT

DRUGS (1)
  1. REYATAZ [Suspect]

REACTIONS (1)
  - BLOOD GLUCOSE INCREASED [None]
